FAERS Safety Report 13129374 (Version 2)
Quarter: 2017Q2

REPORT INFORMATION
  Report Type: Spontaneous
  Country: PT (occurrence: PT)
  Receive Date: 20170119
  Receipt Date: 20170602
  Transmission Date: 20170830
  Serious: Yes (Life-Threatening, Other)
  Sender: FDA-Public Use
  Company Number: PT-009507513-1701PRT006959

PATIENT
  Age: 78 Year
  Sex: Female
  Weight: 60 kg

DRUGS (8)
  1. SINEMET [Suspect]
     Active Substance: CARBIDOPA\LEVODOPA
     Indication: PARKINSON^S DISEASE
     Dosage: 6 DF, QD
     Route: 048
     Dates: start: 2005
  2. LANOXIN [Concomitant]
     Active Substance: DIGOXIN
     Indication: ARRHYTHMIA
     Dosage: 0.125 MG, QD
     Route: 048
     Dates: start: 2005
  3. LEPONEX [Interacting]
     Active Substance: CLOZAPINE
     Indication: HALLUCINATION
     Dosage: 12.5 MG, QD
     Route: 048
     Dates: start: 2012
  4. LEPONEX [Interacting]
     Active Substance: CLOZAPINE
     Dosage: 6.25 MG, QD
     Route: 048
  5. TROMALYT [Concomitant]
     Active Substance: ASPIRIN
     Indication: CEREBROVASCULAR ACCIDENT PROPHYLAXIS
     Dosage: 150 MG, QD
     Route: 048
     Dates: start: 2008
  6. TRANXENE T-TAB [Concomitant]
     Active Substance: CLORAZEPATE DIPOTASSIUM
     Indication: ANXIETY
     Dosage: 5 MG, QD
     Route: 048
     Dates: start: 2010
  7. SINEMET CR [Concomitant]
     Active Substance: CARBIDOPA\LEVODOPA
     Indication: PARKINSON^S DISEASE
     Dosage: 2 DF, QD
     Route: 048
     Dates: start: 2010
  8. SINEMET [Interacting]
     Active Substance: CARBIDOPA\LEVODOPA
     Dosage: 4 DF, QD
     Route: 048

REACTIONS (3)
  - Loss of consciousness [Recovered/Resolved]
  - Orthostatic hypotension [Recovered/Resolved]
  - Syncope [Recovered/Resolved]

NARRATIVE: CASE EVENT DATE: 201504
